FAERS Safety Report 7241377-1 (Version None)
Quarter: 2011Q1

REPORT INFORMATION
  Report Type: 
  Country: None (occurrence: None)
  Receive Date: 20110124
  Receipt Date: 20110117
  Transmission Date: 20110831
  Serious: Yes (Life-Threatening)
  Sender: FDA-Public Use
  Company Number: AU-ROCHE-753976

PATIENT
  Age: 1 Year
  Sex: Male

DRUGS (6)
  1. DIAZEPAM [Suspect]
     Route: 065
     Dates: start: 20100923, end: 20100923
  2. ROCURONIUM BROMIDE [Suspect]
     Route: 065
     Dates: start: 20100923, end: 20100923
  3. THIOPENTAL SODIUM [Suspect]
     Route: 065
     Dates: start: 20100923, end: 20100923
  4. CEFTRIAXONE SODIUM [Suspect]
     Route: 065
  5. FENTANYL [Suspect]
     Route: 065
     Dates: start: 20100923, end: 20100923
  6. SUXAMETHONIUM [Suspect]
     Route: 065
     Dates: start: 20100923, end: 20100923

REACTIONS (3)
  - CARBON DIOXIDE INCREASED [None]
  - TACHYCARDIA [None]
  - HYPERTHERMIA [None]
